FAERS Safety Report 8784704 (Version 1)
Quarter: 2012Q4

REPORT INFORMATION
  Report Type: Report from Study
  Country: ES (occurrence: ES)
  Receive Date: 20120914
  Receipt Date: 20120914
  Transmission Date: 20130627
  Serious: Yes (Other)
  Sender: FDA-Public Use
  Company Number: ES-PFIZER INC-2012222096

PATIENT

DRUGS (1)
  1. BOSUTINIB [Suspect]
     Dosage: UNK

REACTIONS (1)
  - Interstitial lung disease [Unknown]
